FAERS Safety Report 8282316-4 (Version None)
Quarter: 2012Q2

REPORT INFORMATION
  Report Type: 
  Country: None (occurrence: None)
  Receive Date: 20120413
  Receipt Date: 20120413
  Transmission Date: 20120825
  Serious: Yes (Life-Threatening, Hospitalization, Other)
  Sender: FDA-Public Use
  Company Number: None

PATIENT
  Age: 89 Year
  Sex: Male
  Weight: 77.7 kg

DRUGS (1)
  1. AVODART [Suspect]
     Indication: BENIGN PROSTATIC HYPERPLASIA
     Dosage: 0.5MG
     Route: 048
     Dates: start: 20110901, end: 20120319

REACTIONS (8)
  - ERYTHEMA [None]
  - SKIN EXFOLIATION [None]
  - OXYGEN SATURATION DECREASED [None]
  - COUGH [None]
  - RASH [None]
  - BLISTER [None]
  - RESPIRATORY DISORDER [None]
  - MOUTH HAEMORRHAGE [None]
